FAERS Safety Report 9933438 (Version 1)
Quarter: 2014Q1

REPORT INFORMATION
  Report Type: Report from Study
  Country: US (occurrence: US)
  Receive Date: 20140228
  Receipt Date: 20140228
  Transmission Date: 20141002
  Serious: No
  Sender: FDA-Public Use
  Company Number: US-ABBVIE-14P-163-1199182-00

PATIENT
  Sex: Male
  Weight: 83.99 kg

DRUGS (5)
  1. ANDROGEL [Suspect]
     Indication: BLOOD TESTOSTERONE DECREASED
     Dosage: 3 PUMPS
     Route: 061
     Dates: start: 2011
  2. XANAX [Concomitant]
     Indication: ANXIETY
  3. LYRICA [Concomitant]
     Indication: ANXIETY
  4. LEXAPRO [Concomitant]
     Indication: DEPRESSION
  5. SIMVASTATIN [Concomitant]
     Indication: BLOOD CHOLESTEROL INCREASED

REACTIONS (1)
  - Drug administered at inappropriate site [Not Recovered/Not Resolved]
